FAERS Safety Report 6734168-9 (Version None)
Quarter: 2010Q2

REPORT INFORMATION
  Report Type: 
  Country: None (occurrence: None)
  Receive Date: 20100520
  Receipt Date: 20100511
  Transmission Date: 20101027
  Serious: Yes (Hospitalization)
  Sender: FDA-Public Use
  Company Number: NZ-PURDUE-USA-2010-0043872

PATIENT
  Age: 81 Year
  Sex: Female

DRUGS (3)
  1. OXYCONTIN [Suspect]
     Indication: PAIN
     Dosage: 480 MG, UNK
     Route: 048
  2. OXYIR CAPSULES 5 MG [Suspect]
     Indication: PAIN
     Dosage: 20 MG, PRN
     Route: 048
  3. DEXAMETHASONE [Concomitant]
     Dosage: 4 MG, UNK

REACTIONS (2)
  - CONFUSIONAL STATE [None]
  - HYPONATRAEMIA [None]
